FAERS Safety Report 25145714 (Version 4)
Quarter: 2025Q2

REPORT INFORMATION
  Report Type: Spontaneous
  Country: TW (occurrence: TW)
  Receive Date: 20250401
  Receipt Date: 20250417
  Transmission Date: 20250717
  Serious: Yes (Death, Hospitalization, Other)
  Sender: PFIZER
  Company Number: TW-PFM-2025-01573

PATIENT
  Age: 76 Year
  Sex: Female
  Weight: 58.6 kg

DRUGS (4)
  1. BRAFTOVI [Suspect]
     Active Substance: ENCORAFENIB
     Indication: Colorectal cancer metastatic
     Dosage: 300 MG, DAILY
     Route: 048
     Dates: start: 20241227, end: 20250314
  2. BRAFTOVI [Suspect]
     Active Substance: ENCORAFENIB
     Indication: BRAF V600E mutation positive
  3. ERBITUX [Concomitant]
     Active Substance: CETUXIMAB
     Indication: Colorectal cancer metastatic
     Route: 042
     Dates: start: 20241227, end: 20250314
  4. ERBITUX [Concomitant]
     Active Substance: CETUXIMAB
     Indication: BRAF V600E mutation positive

REACTIONS (5)
  - Death [Fatal]
  - Subdural haematoma [Unknown]
  - Contusion [Unknown]
  - Melanocytic naevus [Unknown]
  - Epistaxis [Unknown]

NARRATIVE: CASE EVENT DATE: 20250301
